FAERS Safety Report 24571428 (Version 1)
Quarter: 2024Q4

REPORT INFORMATION
  Report Type: Spontaneous
  Country: CN (occurrence: CN)
  Receive Date: 20241101
  Receipt Date: 20241101
  Transmission Date: 20250115
  Serious: Yes (Other)
  Sender: NOVARTIS
  Company Number: CN-002147023-NVSC2024CN210318

PATIENT
  Age: 32 Year
  Sex: Female
  Weight: 75 kg

DRUGS (5)
  1. CYCLOSPORINE [Suspect]
     Active Substance: CYCLOSPORINE
     Indication: Aplastic anaemia
     Dosage: 30 MG, BID (PUMP INJECTION)
     Route: 065
     Dates: start: 20240812, end: 20240912
  2. CYCLOSPORINE [Suspect]
     Active Substance: CYCLOSPORINE
     Dosage: 27 MG, BID (PUMP INJECTION)
     Route: 065
     Dates: start: 20240913, end: 20240914
  3. CYCLOSPORINE [Suspect]
     Active Substance: CYCLOSPORINE
     Dosage: 20 MG, BID (PUMP INJECTION)
     Route: 065
     Dates: start: 20240915, end: 20240916
  4. CYCLOSPORINE [Suspect]
     Active Substance: CYCLOSPORINE
     Indication: Aplastic anaemia
     Dosage: 100 MG, BID
     Route: 048
     Dates: start: 20240918, end: 20240922
  5. CYCLOSPORINE [Suspect]
     Active Substance: CYCLOSPORINE
     Dosage: 50 MG, BID
     Route: 048
     Dates: start: 20240923, end: 20240924

REACTIONS (7)
  - Muscle twitching [Recovering/Resolving]
  - Dizziness [Recovering/Resolving]
  - Vision blurred [Recovering/Resolving]
  - Mental disorder [Recovering/Resolving]
  - Magnetic resonance imaging abnormal [Recovering/Resolving]
  - White matter lesion [Recovering/Resolving]
  - Magnetic resonance imaging head abnormal [Recovering/Resolving]

NARRATIVE: CASE EVENT DATE: 20240926
